FAERS Safety Report 9774289 (Version 6)
Quarter: 2017Q1

REPORT INFORMATION
  Report Type: Report from Study
  Country: BR (occurrence: BR)
  Receive Date: 20131220
  Receipt Date: 20170222
  Transmission Date: 20170429
  Serious: Yes (Hospitalization, Other)
  Sender: FDA-Public Use
  Company Number: BR-ROCHE-1322746

PATIENT
  Age: 71 Year
  Sex: Female
  Weight: 68 kg

DRUGS (13)
  1. MABTHERA [Suspect]
     Active Substance: RITUXIMAB
     Indication: RHEUMATOID ARTHRITIS
     Dosage: 6 CYCLES
     Route: 042
     Dates: start: 20101101, end: 201410
  2. PREDNISONE. [Concomitant]
     Active Substance: PREDNISONE
     Indication: RHEUMATOID ARTHRITIS
     Route: 065
  3. TYLEX (BRAZIL) [Concomitant]
     Active Substance: ACETAMINOPHEN\CODEINE PHOSPHATE
     Indication: RHEUMATOID ARTHRITIS
     Route: 065
  4. METHOTREXATE. [Concomitant]
     Active Substance: METHOTREXATE
     Indication: RHEUMATOID ARTHRITIS
     Route: 065
  5. FOLIC ACID. [Concomitant]
     Active Substance: FOLIC ACID
  6. HYDROCHLOROTHIAZIDE. [Concomitant]
     Active Substance: HYDROCHLOROTHIAZIDE
     Indication: HYPERTENSION
  7. BONALEN (BRAZIL) [Concomitant]
     Active Substance: ALENDRONATE SODIUM
     Indication: OSTEOARTHRITIS
  8. PARACETAMOL [Concomitant]
     Active Substance: ACETAMINOPHEN
     Indication: RHEUMATOID ARTHRITIS
     Route: 065
  9. PREDNISONE. [Concomitant]
     Active Substance: PREDNISONE
     Indication: ASTHMA
  10. OMEPRAZOLE. [Concomitant]
     Active Substance: OMEPRAZOLE
     Route: 065
  11. VIMOVO [Concomitant]
     Active Substance: ESOMEPRAZOLE MAGNESIUM\NAPROXEN
     Indication: RHEUMATOID ARTHRITIS
  12. NIMESULIDE [Concomitant]
     Active Substance: NIMESULIDE
     Indication: RHEUMATOID ARTHRITIS
  13. LOSARTAN. [Concomitant]
     Active Substance: LOSARTAN
     Indication: HYPERTENSION
     Route: 065

REACTIONS (10)
  - Blood glucose increased [Not Recovered/Not Resolved]
  - Tendon rupture [Recovered/Resolved]
  - Fall [Unknown]
  - Femur fracture [Recovered/Resolved]
  - Body height decreased [Not Recovered/Not Resolved]
  - Glaucoma [Not Recovered/Not Resolved]
  - Dengue fever [Not Recovered/Not Resolved]
  - Bone disorder [Unknown]
  - Arthropathy [Unknown]
  - Gait disturbance [Not Recovered/Not Resolved]

NARRATIVE: CASE EVENT DATE: 20150301
